FAERS Safety Report 8801818 (Version 2)
Quarter: 2015Q1

REPORT INFORMATION
  Report Type: Report from Study
  Country: US (occurrence: US)
  Receive Date: 20120921
  Receipt Date: 20150320
  Transmission Date: 20150721
  Serious: Yes (Death)
  Sender: FDA-Public Use
  Company Number: US-ROCHE-1104262

PATIENT
  Sex: Male

DRUGS (13)
  1. DILANTIN [Concomitant]
     Active Substance: PHENYTOIN
  2. COUMADIN [Concomitant]
     Active Substance: WARFARIN SODIUM
  3. TARCEVA [Suspect]
     Active Substance: ERLOTINIB HYDROCHLORIDE
     Indication: PRODUCT USED FOR UNKNOWN INDICATION
     Route: 065
  4. BENADRYL [Concomitant]
     Active Substance: DIPHENHYDRAMINE HYDROCHLORIDE
     Route: 042
  5. TAGAMET [Concomitant]
     Active Substance: CIMETIDINE
     Route: 065
  6. ALOXI [Concomitant]
     Active Substance: PALONOSETRON HYDROCHLORIDE
     Route: 042
  7. DECADRON [Concomitant]
     Active Substance: DEXAMETHASONE
     Route: 042
  8. AVASTIN [Suspect]
     Active Substance: BEVACIZUMAB
     Indication: BRAIN NEOPLASM MALIGNANT
     Dosage: HE ALSO RECEIVED BEVACIZUMAB ON 27/JUL/2007, 14/AUG/2007, 28/AUG/2007, 11/SEP/2007, 02/OCT/2007, AND
     Route: 042
  9. TEMODAR [Concomitant]
     Active Substance: TEMOZOLOMIDE
  10. CAMPTOSAR [Concomitant]
     Active Substance: IRINOTECAN HYDROCHLORIDE
     Route: 042
  11. DECADRON [Concomitant]
     Active Substance: DEXAMETHASONE
     Route: 042
  12. HEPARIN [Concomitant]
     Active Substance: HEPARIN SODIUM
  13. ACCUTANE [Concomitant]
     Active Substance: ISOTRETINOIN
     Route: 065

REACTIONS (8)
  - Hemiplegia [Unknown]
  - Head discomfort [Unknown]
  - Asthenia [Unknown]
  - Rhinorrhoea [Unknown]
  - Fatigue [Unknown]
  - Disease progression [Unknown]
  - Off label use [Unknown]
  - Death [Fatal]
